FAERS Safety Report 19423074 (Version 11)
Quarter: 2022Q2

REPORT INFORMATION
  Report Type: Spontaneous
  Country: JP (occurrence: JP)
  Receive Date: 20210616
  Receipt Date: 20220630
  Transmission Date: 20220721
  Serious: Yes (Hospitalization)
  Sender: FDA-Public Use
  Company Number: JP-BRISTOL-MYERS SQUIBB COMPANY-BMS-2020-003772

PATIENT
  Age: 61 Year
  Sex: Female
  Weight: 50 kg

DRUGS (13)
  1. YERVOY [Suspect]
     Active Substance: IPILIMUMAB
     Indication: Metastatic renal cell carcinoma
     Route: 041
     Dates: start: 20191218, end: 20191218
  2. YERVOY [Suspect]
     Active Substance: IPILIMUMAB
     Route: 041
     Dates: start: 20200117, end: 20200117
  3. OPDIVO [Suspect]
     Active Substance: NIVOLUMAB
     Indication: Metastatic renal cell carcinoma
     Route: 041
     Dates: start: 20191218, end: 20200116
  4. OPDIVO [Suspect]
     Active Substance: NIVOLUMAB
     Route: 041
     Dates: start: 20200117, end: 20200206
  5. OPDIVO [Suspect]
     Active Substance: NIVOLUMAB
     Route: 041
     Dates: start: 20200207
  6. POLARAMINE [Concomitant]
     Active Substance: DEXCHLORPHENIRAMINE MALEATE
     Indication: Metastatic renal cell carcinoma
     Dosage: 5 MG, EVERYDAY
     Route: 065
     Dates: start: 20191218, end: 20191218
  7. POLARAMINE [Concomitant]
     Active Substance: DEXCHLORPHENIRAMINE MALEATE
     Indication: Renal cell carcinoma
  8. NAPROXEN [Concomitant]
     Active Substance: NAPROXEN
     Indication: Metastatic renal cell carcinoma
     Dosage: 3 IN 1 DAY
     Route: 048
     Dates: start: 20191209, end: 20191222
  9. SENNOSIDES A AND B [Concomitant]
     Active Substance: SENNOSIDES A AND B
     Indication: Metastatic renal cell carcinoma
     Route: 048
     Dates: start: 20191209, end: 20191222
  10. SENNOSIDES A AND B [Concomitant]
     Active Substance: SENNOSIDES A AND B
     Indication: Metastatic renal cell carcinoma
     Dosage: 3 IN 1 DAY
     Route: 048
     Dates: start: 20191209, end: 20191222
  11. TRANSAMIN [Concomitant]
     Active Substance: TRANEXAMIC ACID
     Indication: Metastatic renal cell carcinoma
     Dosage: 250 MG, Q8H
     Route: 048
     Dates: start: 20191209, end: 20191222
  12. TRANSAMIN [Concomitant]
     Active Substance: TRANEXAMIC ACID
     Indication: Renal cell carcinoma
  13. SENNOSIDES A AND B [Concomitant]
     Active Substance: SENNOSIDES A AND B
     Indication: Metastatic renal cell carcinoma
     Dosage: 28
     Route: 048
     Dates: start: 20191214, end: 20191229

REACTIONS (5)
  - Stomatitis [Unknown]
  - Pyrexia [Unknown]
  - Erythema [Recovered/Resolved]
  - Skin disorder [Recovered/Resolved]
  - Erythema [Recovering/Resolving]

NARRATIVE: CASE EVENT DATE: 20200105
